FAERS Safety Report 6946233-1 (Version None)
Quarter: 2010Q3

REPORT INFORMATION
  Report Type: 
  Country: None (occurrence: None)
  Receive Date: 20100824
  Receipt Date: 20100811
  Transmission Date: 20110219
  Serious: Yes (Congenital Anomaly)
  Sender: FDA-Public Use
  Company Number: 2006AL003754

PATIENT

DRUGS (6)
  1. TRAMADOL HYDROCHLORIDE [Suspect]
     Dosage: TRPL
     Route: 064
  2. ACETAMINOPHEN AND CODEINE PHOSPHATE [Suspect]
     Dosage: TRPL
     Route: 064
  3. IMIPRAMINE [Suspect]
     Dosage: TRPL
     Route: 064
  4. CO-DYDRAMOL (PARAMOL-118) [Suspect]
     Dosage: TRPL
     Route: 064
  5. CON MEDS [Concomitant]
  6. PREV MEDS [Concomitant]

REACTIONS (2)
  - CONGENITAL MULTIPLEX ARTHROGRYPOSIS [None]
  - MATERNAL DRUGS AFFECTING FOETUS [None]
